FAERS Safety Report 6594047-7 (Version None)
Quarter: 2010Q1

REPORT INFORMATION
  Report Type: 
  Country: None (occurrence: None)
  Receive Date: 20100218
  Receipt Date: 20100218
  Transmission Date: 20100710
  Serious: No
  Sender: FDA-Public Use
  Company Number: None

PATIENT
  Age: 60 Year
  Sex: Male

DRUGS (1)
  1. HEPARIN [Suspect]
     Indication: ATRIAL FIBRILLATION
     Dosage: 1000 UNITS PER HOUR IV
     Route: 042
     Dates: start: 20090526, end: 20090904

REACTIONS (2)
  - ANTI-PLATELET ANTIBODY POSITIVE [None]
  - THROMBOCYTOPENIA [None]
